FAERS Safety Report 16037627 (Version 1)
Quarter: 2019Q1

REPORT INFORMATION
  Report Type: Report from Study
  Country: US (occurrence: US)
  Receive Date: 20190305
  Receipt Date: 20190305
  Transmission Date: 20190418
  Serious: Yes (Other)
  Sender: FDA-Public Use
  Company Number: US-MYLANLABS-2019M1019610

PATIENT
  Age: 60 Year
  Sex: Female
  Weight: 83 kg

DRUGS (4)
  1. PROGRAF [Suspect]
     Active Substance: TACROLIMUS\TACROLIMUS ANHYDROUS
     Indication: RENAL TRANSPLANT
     Dosage: 2 MILLIGRAM, QD
     Route: 048
     Dates: start: 1998
  2. PLAQUENIL [Concomitant]
     Active Substance: HYDROXYCHLOROQUINE SULFATE
     Dosage: UNK
     Dates: start: 1975
  3. PREDNISONE. [Suspect]
     Active Substance: PREDNISONE
     Indication: PRODUCT USED FOR UNKNOWN INDICATION
     Dosage: UNK
  4. TOPROL XL [Concomitant]
     Active Substance: METOPROLOL SUCCINATE
     Dosage: UNK
     Dates: start: 1992

REACTIONS (6)
  - Sjogren^s syndrome [Unknown]
  - Fibromyalgia [Not Recovered/Not Resolved]
  - Tooth loss [Unknown]
  - Joint injury [Unknown]
  - Neuropathy peripheral [Unknown]
  - Laryngitis [Not Recovered/Not Resolved]

NARRATIVE: CASE EVENT DATE: 2002
